FAERS Safety Report 8594754-0 (Version None)
Quarter: 2012Q3

REPORT INFORMATION
  Report Type: 
  Country: None (occurrence: None)
  Receive Date: 20120815
  Receipt Date: 20120803
  Transmission Date: 20120928
  Serious: No
  Sender: FDA-Public Use
  Company Number: US-ASTRAZENECA-2012SE55309

PATIENT
  Age: 63 Year
  Sex: Female

DRUGS (2)
  1. NEXIUM [Suspect]
     Route: 048
  2. OVER THE COUNTER DRUGS [Concomitant]

REACTIONS (3)
  - APHAGIA [None]
  - DRUG DOSE OMISSION [None]
  - DIABETES MELLITUS [None]
